FAERS Safety Report 10012905 (Version 1)
Quarter: 2014Q1

REPORT INFORMATION
  Report Type: Spontaneous
  Country: US (occurrence: US)
  Receive Date: 20140314
  Receipt Date: 20140314
  Transmission Date: 20141002
  Serious: No
  Sender: FDA-Public Use
  Company Number: US-ASTRAZENECA-2013SE64493

PATIENT
  Age: 25 Year
  Sex: Male

DRUGS (2)
  1. ZOMIG [Suspect]
     Indication: MIGRAINE
     Route: 048
  2. ZOMIG [Suspect]
     Indication: MIGRAINE
     Dosage: GENERIC (CEPHALON)
     Route: 048
     Dates: start: 201305

REACTIONS (2)
  - Gastric disorder [Unknown]
  - Abdominal pain upper [Unknown]
